FAERS Safety Report 5283681-2 (Version None)
Quarter: 2007Q1

REPORT INFORMATION
  Report Type: 
  Country: None (occurrence: None)
  Receive Date: 20070327
  Receipt Date: 20070314
  Transmission Date: 20070707
  Serious: Yes (Disabling, Other)
  Sender: FDA-Public Use
  Company Number: T200700311

PATIENT
  Age: 71 Year
  Sex: Male

DRUGS (1)
  1. OPTIMARK [Suspect]
     Indication: NUCLEAR MAGNETIC RESONANCE IMAGING
     Dosage: SINGLE
     Dates: start: 20060101, end: 20060101

REACTIONS (1)
  - NEPHROGENIC FIBROSING DERMOPATHY [None]
